FAERS Safety Report 15113479 (Version 1)
Quarter: 2018Q3

REPORT INFORMATION
  Report Type: Spontaneous
  Country: CA (occurrence: CA)
  Receive Date: 20180706
  Receipt Date: 20180706
  Transmission Date: 20181010
  Serious: Yes (Other)
  Sender: FDA-Public Use
  Company Number: CA-ROCHE-2146538

PATIENT
  Age: 65 Year
  Sex: Female

DRUGS (3)
  1. TEMODAL [Suspect]
     Active Substance: TEMOZOLOMIDE
     Indication: PANCREATIC NEOPLASM
     Route: 048
  2. XELODA [Suspect]
     Active Substance: CAPECITABINE
     Indication: PRODUCT USED FOR UNKNOWN INDICATION
     Route: 065
  3. TEMODAL [Suspect]
     Active Substance: TEMOZOLOMIDE
     Indication: PRODUCT USED FOR UNKNOWN INDICATION
     Route: 048

REACTIONS (7)
  - Blood test abnormal [Recovering/Resolving]
  - Platelet count decreased [Recovering/Resolving]
  - Renal pain [Recovering/Resolving]
  - Nasopharyngitis [Recovering/Resolving]
  - Cytopenia [Recovering/Resolving]
  - Fluid intake reduced [Recovering/Resolving]
  - Off label use [Unknown]
